FAERS Safety Report 10955066 (Version 2)
Quarter: 2015Q1

REPORT INFORMATION
  Report Type: Report from Study
  Country: MX (occurrence: MX)
  Receive Date: 20150325
  Receipt Date: 20150331
  Transmission Date: 20150721
  Serious: Yes (Death, Hospitalization)
  Sender: FDA-Public Use
  Company Number: PHHY2013MX047451

PATIENT
  Age: 75 Year
  Sex: Female

DRUGS (6)
  1. SPIRIVA [Concomitant]
     Active Substance: TIOTROPIUM BROMIDE MONOHYDRATE
     Indication: LUNG DISORDER
     Dosage: 2 DF, DAILY
     Route: 065
  2. ONBREZ [Suspect]
     Active Substance: INDACATEROL
     Indication: CHRONIC OBSTRUCTIVE PULMONARY DISEASE
     Dosage: 150 UG BID: 1 IN MORNING AND 1 IN NIGHT
     Route: 055
  3. ONBREZ [Suspect]
     Active Substance: INDACATEROL
     Indication: LUNG DISORDER
     Dosage: 150 UG, QD: AT NIGHT
     Route: 055
  4. ONBREZ [Suspect]
     Active Substance: INDACATEROL
     Dosage: 150 UG, QD: AT AFTERNOON
     Route: 055
  5. ONBREZ [Suspect]
     Active Substance: INDACATEROL
     Dosage: 150 UG, BID: ONE IN THE MORNING AND ONE IN THE AFTERNOON)
     Route: 055
  6. SPIRIVA [Concomitant]
     Active Substance: TIOTROPIUM BROMIDE MONOHYDRATE
     Dosage: 1 DF, DAILY
     Route: 065

REACTIONS (9)
  - Bronchial secretion retention [Fatal]
  - Off label use [Unknown]
  - Dyspnoea [Recovered/Resolved]
  - Aphasia [Recovered/Resolved]
  - Pulmonary fibrosis [Fatal]
  - Dysphonia [Not Recovered/Not Resolved]
  - Respiratory arrest [Fatal]
  - Malaise [Not Recovered/Not Resolved]
  - Influenza [Recovered/Resolved]

NARRATIVE: CASE EVENT DATE: 20130505
